FAERS Safety Report 7829818-X (Version None)
Quarter: 2011Q4

REPORT INFORMATION
  Report Type: 
  Country: None (occurrence: None)
  Receive Date: 20111021
  Receipt Date: 20111011
  Transmission Date: 20120403
  Serious: Yes (Hospitalization, Other)
  Sender: FDA-Public Use
  Company Number: TW-JNJFOC-20111007263

PATIENT
  Age: 20 Year
  Sex: Male
  Weight: 68 kg

DRUGS (4)
  1. TOPAMAX [Suspect]
     Indication: CONVULSION
     Route: 048
  2. DEPAKENE [Suspect]
     Indication: PRODUCT USED FOR UNKNOWN INDICATION
     Route: 065
     Dates: end: 20110411
  3. PHENYTOIN SODIUM CAP [Suspect]
     Indication: CONVULSION PROPHYLAXIS
     Route: 065
  4. SEROQUEL XR [Suspect]
     Indication: PRODUCT USED FOR UNKNOWN INDICATION
     Route: 065

REACTIONS (5)
  - HOSPITALISATION [None]
  - CONVULSION [None]
  - RASH [None]
  - AGITATION [None]
  - AGGRESSION [None]
